FAERS Safety Report 22636572 (Version 1)
Quarter: 2023Q2

REPORT INFORMATION
  Report Type: Spontaneous
  Country: US (occurrence: US)
  Receive Date: 20230623
  Receipt Date: 20230623
  Transmission Date: 20230721
  Serious: No
  Sender: FDA-Public Use
  Company Number: US-PFIZER INC-202300228859

PATIENT
  Sex: Male

DRUGS (1)
  1. VYNDAMAX [Suspect]
     Active Substance: TAFAMIDIS

REACTIONS (1)
  - Hypoacusis [Unknown]
